FAERS Safety Report 10629034 (Version 1)
Quarter: 2014Q4

REPORT INFORMATION
  Report Type: Spontaneous
  Country: US (occurrence: None)
  Receive Date: 20141203
  Receipt Date: 20141203
  Transmission Date: 20150529
  Serious: Yes (Other)
  Sender: FDA-Public Use
  Company Number: None

PATIENT
  Age: 53 Year
  Sex: Male
  Weight: 79.38 kg

DRUGS (1)
  1. METHYLPHENIDATE XL 36 MG MALLINKRODT [Suspect]
     Active Substance: METHYLPHENIDATE
     Indication: ATTENTION DEFICIT/HYPERACTIVITY DISORDER
     Route: 048
     Dates: start: 20141126, end: 20141201

REACTIONS (5)
  - Product quality issue [None]
  - Anxiety [None]
  - Product substitution issue [None]
  - Suicidal ideation [None]
  - Influenza like illness [None]

NARRATIVE: CASE EVENT DATE: 20141201
